FAERS Safety Report 14561797 (Version 3)
Quarter: 2018Q2

REPORT INFORMATION
  Report Type: Report from Study
  Country: US (occurrence: US)
  Receive Date: 20180222
  Receipt Date: 20180625
  Transmission Date: 20180711
  Serious: Yes (Hospitalization, Other)
  Sender: FDA-Public Use
  Company Number: US-GILEAD-2018-0322423

PATIENT
  Age: 51 Year
  Sex: Female

DRUGS (5)
  1. AMLODIPINE [Concomitant]
     Active Substance: AMLODIPINE BESYLATE
  2. UPTRAVI [Concomitant]
     Active Substance: SELEXIPAG
  3. ADCIRCA [Concomitant]
     Active Substance: TADALAFIL
  4. AMBRISENTAN [Suspect]
     Active Substance: AMBRISENTAN
     Indication: PRODUCT USED FOR UNKNOWN INDICATION
     Dosage: 5 MG, QD
     Route: 065
     Dates: start: 20150327
  5. ELIQUIS [Concomitant]
     Active Substance: APIXABAN

REACTIONS (10)
  - Product use issue [Not Recovered/Not Resolved]
  - Shock [Unknown]
  - Dizziness [Unknown]
  - Pulmonary hypertension [Unknown]
  - Influenza [Unknown]
  - Fatigue [Not Recovered/Not Resolved]
  - Multi-organ disorder [Unknown]
  - Condition aggravated [Unknown]
  - Palpitations [Not Recovered/Not Resolved]
  - Dyspnoea [Not Recovered/Not Resolved]
